FAERS Safety Report 5722535-1 (Version None)
Quarter: 2008Q2

REPORT INFORMATION
  Report Type: 
  Country: None (occurrence: None)
  Receive Date: 20080429
  Receipt Date: 20070803
  Transmission Date: 20081010
  Serious: No
  Sender: FDA-Public Use
  Company Number: US-ASTRAZENECA-2007UW18881

PATIENT
  Sex: Female
  Weight: 72.6 kg

DRUGS (3)
  1. NEXIUM [Suspect]
     Indication: INCREASED APPETITE
     Route: 048
  2. NEXIUM [Suspect]
     Indication: ASTHENIA
     Route: 048
  3. NEXIUM [Suspect]
     Indication: ANXIETY
     Route: 048

REACTIONS (1)
  - FAECES DISCOLOURED [None]
